FAERS Safety Report 8140498-9 (Version None)
Quarter: 2012Q1

REPORT INFORMATION
  Report Type: 
  Country: None (occurrence: None)
  Receive Date: 20120216
  Receipt Date: 20120214
  Transmission Date: 20120608
  Serious: Yes (Other)
  Sender: FDA-Public Use
  Company Number: US-PFIZER INC-2012040892

PATIENT
  Sex: Female
  Weight: 58.957 kg

DRUGS (1)
  1. CHANTIX [Suspect]
     Indication: SMOKING CESSATION THERAPY
     Dosage: 0.5 MG, DAILY
     Route: 048
     Dates: start: 20120207

REACTIONS (8)
  - CARDIAC DISCOMFORT [None]
  - CHEST DISCOMFORT [None]
  - IRRITABILITY [None]
  - DYSGEUSIA [None]
  - EMOTIONAL DISORDER [None]
  - HOSTILITY [None]
  - IMPATIENCE [None]
  - FEELING ABNORMAL [None]
